FAERS Safety Report 25024314 (Version 1)
Quarter: 2025Q1

REPORT INFORMATION
  Report Type: Spontaneous
  Country: US (occurrence: None)
  Receive Date: 20250228
  Receipt Date: 20250228
  Transmission Date: 20250408
  Serious: Yes (Life-Threatening)
  Sender: FDA-CTU
  Company Number: None

PATIENT
  Age: 66 Year
  Sex: Male

DRUGS (1)
  1. IODIXANOL [Suspect]
     Active Substance: IODIXANOL
     Indication: Vascular operation
     Route: 042
     Dates: start: 20241202, end: 20241202

REACTIONS (8)
  - Cough [None]
  - Hypotension [None]
  - Hypoxia [None]
  - Tachypnoea [None]
  - Contrast media reaction [None]
  - Respiratory distress [None]
  - Wheezing [None]
  - Mean arterial pressure decreased [None]

NARRATIVE: CASE EVENT DATE: 20241202
